FAERS Safety Report 5985262-1 (Version None)
Quarter: 2008Q4

REPORT INFORMATION
  Report Type: 
  Country: None (occurrence: None)
  Receive Date: 20081203
  Receipt Date: 20081118
  Transmission Date: 20090506
  Serious: Yes (Hospitalization, Other)
  Sender: FDA-Public Use
  Company Number: DSU-2008-01453

PATIENT
  Age: 63 Year
  Sex: Female
  Weight: 55.7924 kg

DRUGS (2)
  1. BENICAR HCT (HYDROCHLOROTHIAZIDE, OLMESARTAN MEDOXOMIL)  (HYDROCHLOROT [Suspect]
     Indication: TRANSIENT ISCHAEMIC ATTACK
     Dosage: 20/12.5 MG (QD), PER ORAL
     Route: 048
     Dates: start: 20080101
  2. ATIVAN [Concomitant]

REACTIONS (5)
  - ADRENAL NEOPLASM [None]
  - DIZZINESS [None]
  - FATIGUE [None]
  - THYROID NEOPLASM [None]
  - TREMOR [None]
